FAERS Safety Report 4766628-4 (Version None)
Quarter: 2005Q3

REPORT INFORMATION
  Report Type: 
  Country: None (occurrence: None)
  Receive Date: 20050908
  Receipt Date: 20050826
  Transmission Date: 20060218
  Serious: Yes (Hospitalization, Other)
  Sender: FDA-Public Use
  Company Number: 2005120464

PATIENT
  Sex: Male

DRUGS (1)
  1. VIAGRA [Suspect]
     Indication: ERECTILE DYSFUNCTION

REACTIONS (8)
  - BLINDNESS [None]
  - CARDIAC DISORDER [None]
  - DRUG INEFFECTIVE [None]
  - HERPES ZOSTER [None]
  - IMPAIRED WORK ABILITY [None]
  - RETINAL HAEMORRHAGE [None]
  - STRESS [None]
  - VITREOUS FLOATERS [None]
